FAERS Safety Report 10019149 (Version 2)
Quarter: 2014Q2

REPORT INFORMATION
  Report Type: Spontaneous
  Country: US (occurrence: US)
  Receive Date: 20140318
  Receipt Date: 20140409
  Transmission Date: 20141212
  Serious: No
  Sender: FDA-Public Use
  Company Number: US-PFIZER INC-2014076709

PATIENT
  Age: 57 Year
  Sex: Female
  Weight: 85.26 kg

DRUGS (11)
  1. GABAPENTIN [Suspect]
     Indication: DIABETIC NEUROPATHY
     Dosage: UNK
  2. ALBUTEROL [Concomitant]
     Dosage: UNK
  3. ALBUTEROL/IPRATROPIUM [Concomitant]
     Dosage: UNK
  4. IPRATROPIUM [Concomitant]
     Dosage: UNK
  5. ATORVASTATIN [Concomitant]
     Dosage: UNK
  6. BENZONATATE [Concomitant]
     Dosage: UNK
  7. LISINOPRIL [Concomitant]
     Dosage: UNK
  8. SPIRONOLACTONE [Concomitant]
     Dosage: UNK
  9. HYDROCHLOROTHIAZIDE [Concomitant]
     Dosage: UNK
  10. ATENOLOL [Concomitant]
     Dosage: UNK
  11. ASPIRIN [Concomitant]
     Dosage: UNK

REACTIONS (1)
  - Drug ineffective for unapproved indication [Unknown]
